FAERS Safety Report 17190743 (Version 1)
Quarter: 2019Q4

REPORT INFORMATION
  Report Type: Spontaneous
  Country: CA (occurrence: CA)
  Receive Date: 20191223
  Receipt Date: 20191223
  Transmission Date: 20200122
  Serious: Yes (Hospitalization)
  Sender: FDA-Public Use
  Company Number: CA-PFIZER INC-2019547700

PATIENT
  Age: 50 Year
  Sex: Female

DRUGS (4)
  1. TYLENOL EXTRA STRENGTH [Suspect]
     Active Substance: ACETAMINOPHEN
     Dosage: 45 DF, UNK
  2. LITHIUM. [Suspect]
     Active Substance: LITHIUM
     Dosage: 30 DF, UNK
  3. VENLAFAXINE HCL [Suspect]
     Active Substance: VENLAFAXINE HYDROCHLORIDE
     Dosage: 1875 MG, UNK
  4. ATIVAN [Suspect]
     Active Substance: LORAZEPAM
     Dosage: 12.5 MG, UNK

REACTIONS (4)
  - Drug level increased [Recovered/Resolved]
  - Suicide attempt [Recovered/Resolved]
  - Somnolence [Recovered/Resolved]
  - Tremor [Recovered/Resolved]
